FAERS Safety Report 22084418 (Version 1)
Quarter: 2023Q1

REPORT INFORMATION
  Report Type: Spontaneous
  Country: US (occurrence: US)
  Receive Date: 20230310
  Receipt Date: 20230310
  Transmission Date: 20230417
  Serious: Yes (Other)
  Sender: FDA-Public Use
  Company Number: US-TEVA-2023-US-2862734

PATIENT
  Age: 58 Year
  Sex: Female

DRUGS (1)
  1. COPAXONE [Suspect]
     Active Substance: GLATIRAMER ACETATE
     Indication: Product used for unknown indication
     Dosage: 15 YEARS AGO?FORM STRENGTH: UNKNOWN
     Route: 065

REACTIONS (3)
  - Multiple sclerosis [Unknown]
  - Feeling abnormal [Unknown]
  - Memory impairment [Unknown]
